FAERS Safety Report 10302489 (Version 1)
Quarter: 2014Q3

REPORT INFORMATION
  Report Type: Spontaneous
  Country: US (occurrence: US)
  Receive Date: 20140714
  Receipt Date: 20140714
  Transmission Date: 20150326
  Serious: No
  Sender: FDA-Public Use
  Company Number: US-GILEAD-2014-0108352

PATIENT
  Age: 78 Year
  Sex: Female

DRUGS (10)
  1. OXYGEN. [Concomitant]
     Active Substance: OXYGEN
  2. CALCIUM CARBONATE. [Concomitant]
     Active Substance: CALCIUM CARBONATE
  3. ASA [Concomitant]
     Active Substance: ASPIRIN
  4. FAMOTIDINE. [Concomitant]
     Active Substance: FAMOTIDINE
  5. FUROSEMIDE. [Concomitant]
     Active Substance: FUROSEMIDE
  6. DIGOXIN. [Concomitant]
     Active Substance: DIGOXIN
  7. INSULIN [Concomitant]
     Active Substance: INSULIN NOS
  8. LETAIRIS [Suspect]
     Active Substance: AMBRISENTAN
     Indication: PULMONARY HYPERTENSION
     Dosage: 5 MG, QD
     Route: 048
     Dates: start: 20140625, end: 20140707
  9. FLOLAN [Concomitant]
     Active Substance: EPOPROSTENOL SODIUM
  10. ATORVASTATIN [Concomitant]
     Active Substance: ATORVASTATIN

REACTIONS (6)
  - Decreased appetite [Unknown]
  - Abdominal pain lower [Unknown]
  - Fatigue [Unknown]
  - Oedema peripheral [Recovering/Resolving]
  - Nausea [Unknown]
  - Dyspnoea exertional [Unknown]

NARRATIVE: CASE EVENT DATE: 20140702
